FAERS Safety Report 16149243 (Version 2)
Quarter: 2019Q2

REPORT INFORMATION
  Report Type: Spontaneous
  Country: US (occurrence: US)
  Receive Date: 20190402
  Receipt Date: 20190614
  Transmission Date: 20190711
  Serious: No
  Sender: FDA-Public Use
  Company Number: US-VIFOR (INTERNATIONAL) INC.-VIT-2019-02684

PATIENT
  Age: 53 Year
  Sex: Male
  Weight: 95 kg

DRUGS (3)
  1. MIRCERA [Suspect]
     Active Substance: METHOXY POLYETHYLENE GLYCOL-EPOETIN BETA
     Indication: NEPHROGENIC ANAEMIA
     Route: 041
     Dates: start: 20180608
  2. MIRCERA [Suspect]
     Active Substance: METHOXY POLYETHYLENE GLYCOL-EPOETIN BETA
     Route: 041
     Dates: start: 20180622, end: 20180622
  3. MIRCERA [Suspect]
     Active Substance: METHOXY POLYETHYLENE GLYCOL-EPOETIN BETA

REACTIONS (4)
  - Dyspnoea [Recovered/Resolved]
  - Anxiety [Recovered/Resolved]
  - Hypotension [Recovered/Resolved]
  - Diarrhoea [Recovered/Resolved]

NARRATIVE: CASE EVENT DATE: 20180622
